FAERS Safety Report 11332923 (Version 1)
Quarter: 2015Q3

REPORT INFORMATION
  Report Type: Spontaneous
  Country: US (occurrence: US)
  Receive Date: 20150803
  Receipt Date: 20150803
  Transmission Date: 20151125
  Serious: No
  Sender: FDA-Public Use
  Company Number: US-ELI_LILLY_AND_COMPANY-US200601000180

PATIENT
  Sex: Male
  Weight: 136.5 kg

DRUGS (3)
  1. LIPITOR [Concomitant]
     Active Substance: ATORVASTATIN CALCIUM
     Indication: BLOOD CHOLESTEROL INCREASED
     Dosage: 10 MG, DAILY (1/D)
  2. AXID [Concomitant]
     Active Substance: NIZATIDINE
     Dosage: 150 MG, EACH EVENING
     Dates: end: 20000613
  3. ZYPREXA [Suspect]
     Active Substance: OLANZAPINE
     Indication: BIPOLAR DISORDER
     Dates: start: 199809, end: 200105

REACTIONS (1)
  - Type 2 diabetes mellitus [Unknown]
